FAERS Safety Report 23096306 (Version 1)
Quarter: 2023Q4

REPORT INFORMATION
  Report Type: Spontaneous
  Country: CN (occurrence: CN)
  Receive Date: 20231023
  Receipt Date: 20231023
  Transmission Date: 20240110
  Serious: Yes (Hospitalization)
  Sender: FDA-Public Use
  Company Number: CN-PFIZER INC-PV202300170613

PATIENT
  Age: 59 Year
  Sex: Male
  Weight: 85 kg

DRUGS (4)
  1. CYTARABINE [Suspect]
     Active Substance: CYTARABINE
     Indication: Acute myeloid leukaemia
     Dosage: 50 MG
     Route: 037
     Dates: start: 20230818, end: 20230818
  2. CYTARABINE [Suspect]
     Active Substance: CYTARABINE
     Dosage: 4 G, 2X/DAY
     Route: 041
     Dates: start: 20230819, end: 20230820
  3. METHOTREXATE [Concomitant]
     Active Substance: METHOTREXATE
     Dosage: 15 MG
     Route: 037
     Dates: start: 20230818
  4. DEXAMETHASONE [Concomitant]
     Active Substance: DEXAMETHASONE
     Dosage: 5 MG
     Route: 037
     Dates: start: 20230818

REACTIONS (6)
  - Hypersensitivity [Recovering/Resolving]
  - Pyrexia [Unknown]
  - Temperature intolerance [Unknown]
  - Chills [Unknown]
  - Urticaria [Unknown]
  - COVID-19 [Unknown]

NARRATIVE: CASE EVENT DATE: 20230820
